FAERS Safety Report 20814371 (Version 1)
Quarter: 2022Q2

REPORT INFORMATION
  Report Type: Spontaneous
  Country: US (occurrence: US)
  Receive Date: 20220511
  Receipt Date: 20220511
  Transmission Date: 20220721
  Serious: No
  Sender: FDA-Public Use
  Company Number: US-CURIUM-2022000152

PATIENT
  Age: 77 Year
  Sex: Female

DRUGS (2)
  1. TECHNETIUM TC-99M SODIUM PERTECHNETATE [Suspect]
     Active Substance: TECHNETIUM TC-99M SODIUM PERTECHNETATE
     Indication: Perfusion brain scan
     Route: 051
     Dates: start: 20220307, end: 20220307
  2. CERETEC [Concomitant]
     Active Substance: TECHNETIUM TC-99M EXAMETAZIME
     Indication: Perfusion brain scan
     Route: 051
     Dates: start: 20220307, end: 20220307

REACTIONS (3)
  - Perfusion brain scan abnormal [Recovered/Resolved]
  - Drug ineffective [Recovered/Resolved]
  - Radiation overdose [Recovered/Resolved]

NARRATIVE: CASE EVENT DATE: 20220301
